FAERS Safety Report 24134129 (Version 2)
Quarter: 2024Q4

REPORT INFORMATION
  Report Type: Spontaneous
  Country: PT (occurrence: PT)
  Receive Date: 20240724
  Receipt Date: 20241204
  Transmission Date: 20250115
  Serious: Yes (Other)
  Sender: JOHNSON AND JOHNSON
  Company Number: PT-JNJFOC-20240752272

PATIENT
  Age: 15 Year
  Sex: Female

DRUGS (6)
  1. OPSUMIT [Suspect]
     Active Substance: MACITENTAN
     Indication: Portopulmonary hypertension
     Route: 048
     Dates: start: 201809, end: 202104
  2. SILDENAFIL [Suspect]
     Active Substance: SILDENAFIL
     Indication: Portopulmonary hypertension
     Dates: start: 201809
  3. SILDENAFIL [Suspect]
     Active Substance: SILDENAFIL
  4. FUROSEMIDE [Concomitant]
     Active Substance: FUROSEMIDE
     Dates: start: 201809
  5. SPIRONOLACTONE [Concomitant]
     Active Substance: SPIRONOLACTONE
     Dates: start: 201809
  6. WARFARIN [Concomitant]
     Active Substance: WARFARIN
     Dates: start: 201809

REACTIONS (4)
  - Hepatic mass [Unknown]
  - Off label use [Unknown]
  - Hepatic enzyme increased [Unknown]
  - Fatigue [Unknown]

NARRATIVE: CASE EVENT DATE: 20180901
